FAERS Safety Report 4555896-X (Version None)
Quarter: 2005Q1

REPORT INFORMATION
  Report Type: 
  Country: None (occurrence: None)
  Receive Date: 20050119
  Receipt Date: 20050107
  Transmission Date: 20050727
  Serious: Yes (Other)
  Sender: FDA-Public Use
  Company Number: PHBS2005JP00696

PATIENT
  Age: 70 Year

DRUGS (2)
  1. LAMPRENE [Suspect]
     Route: 065
  2. ANTIBIOTICS [Concomitant]
     Indication: MYELODYSPLASTIC SYNDROME

REACTIONS (1)
  - PLATELET COUNT DECREASED [None]
